FAERS Safety Report 26008632 (Version 1)
Quarter: 2025Q4

REPORT INFORMATION
  Report Type: Spontaneous
  Country: AU (occurrence: AU)
  Receive Date: 20251106
  Receipt Date: 20251106
  Transmission Date: 20260117
  Serious: No
  Sender: MERCK SHARP & DOHME LLC
  Company Number: AU-009507513-2343970

PATIENT
  Sex: Female

DRUGS (3)
  1. MOLNUPIRAVIR [Suspect]
     Active Substance: MOLNUPIRAVIR
     Indication: COVID-19 treatment
     Dosage: TIME INTERVAL: TOTAL: AFTER REALIZING THE MISTAKE
     Route: 065
     Dates: start: 20251027, end: 20251027
  2. MOLNUPIRAVIR [Suspect]
     Active Substance: MOLNUPIRAVIR
     Indication: COVID-19 treatment
     Dosage: TIME INTERVAL: TOTAL: IN THE MORNING AFTER 10:00 AM
     Route: 065
     Dates: start: 20251027, end: 20251027
  3. MOLNUPIRAVIR [Suspect]
     Active Substance: MOLNUPIRAVIR
     Indication: COVID-19 treatment
     Route: 065

REACTIONS (2)
  - Incorrect dose administered [Unknown]
  - Anxiety [Not Recovered/Not Resolved]

NARRATIVE: CASE EVENT DATE: 20251027
